FAERS Safety Report 10983091 (Version 1)
Quarter: 2015Q2

REPORT INFORMATION
  Report Type: Spontaneous
  Country: PT (occurrence: PT)
  Receive Date: 20150403
  Receipt Date: 20150403
  Transmission Date: 20150821
  Serious: Yes (Other)
  Sender: FDA-Public Use
  Company Number: PT-ACTAVIS-2015-06993

PATIENT
  Age: 66 Year
  Sex: Female
  Weight: 93 kg

DRUGS (2)
  1. DOCETAXEL ACTAVIS [Suspect]
     Active Substance: DOCETAXEL
     Indication: BREAST CANCER
     Dosage: 100 MG/M2, 1/ THREE WEEKS
     Route: 042
     Dates: start: 20150305, end: 20150305
  2. LEPICORTINOLO [Concomitant]
     Active Substance: PREDNISOLONE
     Indication: ALLERGY PROPHYLAXIS
     Dosage: 20 MG, UNKNOWN(2 TABLETS OF 20 MG, THE DAY BEFORE AND 4 TABLETS OF 20 MG ON THE DAY OF ADMINISTRATIO
     Route: 048
     Dates: start: 20150304, end: 20150305

REACTIONS (2)
  - Discomfort [Recovered/Resolved]
  - Back pain [Recovered/Resolved]

NARRATIVE: CASE EVENT DATE: 20150305
